FAERS Safety Report 5249897-6 (Version None)
Quarter: 2007Q1

REPORT INFORMATION
  Report Type: 
  Country: None (occurrence: None)
  Receive Date: 20070228
  Receipt Date: 20060809
  Transmission Date: 20070707
  Serious: No
  Sender: FDA-Public Use
  Company Number: US-GLAXOSMITHKLINE-A0524920A

PATIENT
  Age: 74 Year
  Sex: Male

DRUGS (13)
  1. LAMICTAL [Suspect]
     Indication: BIPOLAR DISORDER
     Route: 048
     Dates: start: 20040908
  2. VASOTEC [Concomitant]
  3. POTASSIUM CL [Concomitant]
  4. LITHIUM CARBONATE [Concomitant]
  5. ASPIRIN [Concomitant]
     Dosage: 81MG UNKNOWN
     Route: 065
  6. GLUCOPHAGE [Concomitant]
  7. AMIODARONE HCL [Concomitant]
     Route: 065
  8. HYDROCHLOROTHIAZIDE [Concomitant]
  9. DYNACIRC [Concomitant]
  10. BUPROPION HCL [Concomitant]
  11. ALLOPURINOL SODIUM [Concomitant]
  12. MUCINEX [Concomitant]
  13. LEVOTHYROXINE SODIUM [Concomitant]

REACTIONS (5)
  - MOUTH ULCERATION [None]
  - PRURITUS [None]
  - SWOLLEN TONGUE [None]
  - TONGUE BITING [None]
  - TONGUE ULCERATION [None]
